FAERS Safety Report 6133206-4 (Version None)
Quarter: 2009Q1

REPORT INFORMATION
  Report Type: 
  Country: None (occurrence: None)
  Receive Date: 20090325
  Receipt Date: 20090325
  Transmission Date: 20090719
  Serious: Yes (Other)
  Sender: FDA-Public Use
  Company Number: None

PATIENT
  Age: 30 Year
  Sex: Female
  Weight: 79.3795 kg

DRUGS (1)
  1. WELLBUTRIN SR [Suspect]
     Indication: DEPRESSION
     Dosage: 150 MG TWICE DAILY PO
     Route: 048
     Dates: start: 20090301, end: 20090320

REACTIONS (3)
  - DRUG HYPERSENSITIVITY [None]
  - EAR DISORDER [None]
  - HYPOAESTHESIA [None]
